FAERS Safety Report 10739927 (Version 5)
Quarter: 2015Q2

REPORT INFORMATION
  Report Type: Report from Study
  Country: US (occurrence: US)
  Receive Date: 20150127
  Receipt Date: 20150520
  Transmission Date: 20150821
  Serious: Yes (Other)
  Sender: FDA-Public Use
  Company Number: US-AMGEN-USASL2015006709

PATIENT
  Age: 48 Year
  Sex: Female

DRUGS (2)
  1. ENBREL [Suspect]
     Active Substance: ETANERCEPT
     Dosage: UNK
     Route: 065
  2. ENBREL [Suspect]
     Active Substance: ETANERCEPT
     Indication: ANKYLOSING SPONDYLITIS
     Dosage: 50 MG, QWK
     Route: 065
     Dates: start: 20150102

REACTIONS (9)
  - Respiratory tract congestion [Not Recovered/Not Resolved]
  - Epistaxis [Not Recovered/Not Resolved]
  - Blood pressure increased [Not Recovered/Not Resolved]
  - Sinus congestion [Not Recovered/Not Resolved]
  - Contusion [Not Recovered/Not Resolved]
  - Infection [Not Recovered/Not Resolved]
  - Paranasal sinus hypersecretion [Not Recovered/Not Resolved]
  - Infection susceptibility increased [Unknown]
  - Application site bruise [Not Recovered/Not Resolved]

NARRATIVE: CASE EVENT DATE: 201502
